FAERS Safety Report 7421356-1 (Version None)
Quarter: 2011Q2

REPORT INFORMATION
  Report Type: 
  Country: None (occurrence: None)
  Receive Date: 20110418
  Receipt Date: 20110413
  Transmission Date: 20111010
  Serious: Yes (Other)
  Sender: FDA-Public Use
  Company Number: CA-ABBOTT-11P-028-0719051-00

PATIENT
  Age: 58 Year
  Sex: Female
  Weight: 53.572 kg

DRUGS (3)
  1. DICLOFENAC W/MISOPROSTOL [Concomitant]
     Indication: PRODUCT USED FOR UNKNOWN INDICATION
     Route: 048
  2. METHOTREXATE [Concomitant]
     Indication: PRODUCT USED FOR UNKNOWN INDICATION
     Route: 048
  3. HUMIRA [Suspect]
     Indication: RHEUMATOID ARTHRITIS
     Route: 058
     Dates: start: 20090721

REACTIONS (4)
  - VOMITING [None]
  - GASTROINTESTINAL MOTILITY DISORDER [None]
  - SMALL INTESTINAL OBSTRUCTION [None]
  - METASTATIC NEOPLASM [None]
